FAERS Safety Report 8333983-8 (Version None)
Quarter: 2012Q2

REPORT INFORMATION
  Report Type: 
  Country: None (occurrence: None)
  Receive Date: 20120503
  Receipt Date: 20120425
  Transmission Date: 20120825
  Serious: Yes (Hospitalization, Other)
  Sender: FDA-Public Use
  Company Number: BR-ROCHE-1063375

PATIENT
  Sex: Male
  Weight: 78 kg

DRUGS (1)
  1. ISOTRETINOIN [Suspect]
     Indication: ACNE
     Route: 048
     Dates: start: 20110701

REACTIONS (3)
  - SUICIDAL IDEATION [None]
  - TOOTH DISORDER [None]
  - DEPRESSION [None]
